FAERS Safety Report 19777171 (Version 2)
Quarter: 2021Q4

REPORT INFORMATION
  Report Type: Spontaneous
  Country: US (occurrence: US)
  Receive Date: 20210901
  Receipt Date: 20211011
  Transmission Date: 20220303
  Serious: No
  Sender: FDA-Public Use
  Company Number: 2021A681732

PATIENT
  Age: 65 Year
  Sex: Male

DRUGS (5)
  1. BYDUREON BCISE [Suspect]
     Active Substance: EXENATIDE
     Indication: Type 2 diabetes mellitus
     Route: 058
     Dates: start: 2021
  2. FARXIGA [Suspect]
     Active Substance: DAPAGLIFLOZIN PROPANEDIOL
     Indication: Type 2 diabetes mellitus
     Route: 048
     Dates: start: 2017
  3. METFORMIN [Concomitant]
     Active Substance: METFORMIN HYDROCHLORIDE
     Indication: Type 2 diabetes mellitus
     Route: 048
  4. BASAGLAR [Concomitant]
     Active Substance: INSULIN GLARGINE
     Route: 058
     Dates: start: 2016
  5. NOVOLOG [Concomitant]
     Active Substance: INSULIN ASPART
     Route: 065

REACTIONS (7)
  - Glycosylated haemoglobin increased [Unknown]
  - Blood glucose increased [Unknown]
  - Incorrect dose administered by device [Unknown]
  - Wrong technique in device usage process [Unknown]
  - Device delivery system issue [Unknown]
  - Device leakage [Unknown]
  - Product design issue [Unknown]

NARRATIVE: CASE EVENT DATE: 20210101
